FAERS Safety Report 4283896-6 (Version None)
Quarter: 2004Q1

REPORT INFORMATION
  Report Type: 
  Country: None (occurrence: None)
  Receive Date: 20040130
  Receipt Date: 20040122
  Transmission Date: 20041129
  Serious: Yes (Hospitalization)
  Sender: FDA-Public Use
  Company Number: HQWYE527922JAN04

PATIENT
  Age: 69 Year
  Sex: Female

DRUGS (8)
  1. PANTOZOL (PANTOPRAZOLE, TABLET, DELAYED RELEASE) [Suspect]
     Indication: DUODENITIS
     Dosage: 20 MG 1X PER 1 DAY, ORAL
     Route: 048
     Dates: start: 20031209, end: 20031215
  2. PANTOZOL (PANTOPRAZOLE, TABLET, DELAYED RELEASE) [Suspect]
     Indication: GASTRITIS
     Dosage: 20 MG 1X PER 1 DAY, ORAL
     Route: 048
     Dates: start: 20031209, end: 20031215
  3. VERAHEXAL (VERAPAMIL HYDROCHLORIDE) [Concomitant]
  4. MOLSIHEXAL (MOLSIDOMINE) [Concomitant]
  5. DIGITOXIN TAB [Concomitant]
  6. MICARDIS [Concomitant]
  7. UNAT (TORASEMIDE) [Concomitant]
  8. MARCUMAR [Concomitant]

REACTIONS (3)
  - ANAEMIA [None]
  - DERMATITIS ALLERGIC [None]
  - RENAL FAILURE [None]
